FAERS Safety Report 4777432-5 (Version None)
Quarter: 2005Q3

REPORT INFORMATION
  Report Type: 
  Country: None (occurrence: None)
  Receive Date: 20050923
  Receipt Date: 20050829
  Transmission Date: 20060218
  Serious: Yes (Hospitalization)
  Sender: FDA-Public Use
  Company Number: US-BRISTOL-MYERS SQUIBB COMPANY-13099833

PATIENT
  Age: 71 Year
  Sex: Female
  Weight: 79 kg

DRUGS (15)
  1. ERBITUX [Suspect]
     Indication: PANCREATIC CARCINOMA METASTATIC
     Dosage: THERAPY START DATE 12-JUL-05. 400 MG/M2 X 1 THEN 250 MG/M2 WEEKLY.
     Route: 042
     Dates: start: 20050816, end: 20050816
  2. GEMCITABINE [Suspect]
     Indication: PANCREATIC CARCINOMA METASTATIC
     Dosage: THERAPY START DATE 19-JUL-05.
     Route: 042
     Dates: start: 20050816, end: 20050816
  3. RADIATION THERAPY [Suspect]
     Indication: PANCREATIC CARCINOMA METASTATIC
     Dosage: 3088 CGY, 16 OF 28 DOSES. THERAPY START DATE 19-JUL-05.
     Dates: start: 20050816, end: 20050816
  4. DEMEROL [Concomitant]
     Dosage: 50 MG THREE TIMES PER DAY AS NEEDED
     Route: 048
  5. ATIVAN [Concomitant]
     Indication: PROPHYLAXIS OF NAUSEA AND VOMITING
     Dosage: 0.5 MG, 1-2 TABLESTS EVERY 4-6 HOURS AS NEEDED
     Route: 048
  6. AMBIEN [Concomitant]
     Dosage: TAKEN AT BEDTIME
     Route: 048
  7. MUPIROCIN [Concomitant]
     Dosage: 2% OINMENT TOPICALLY AS NEEDED
     Route: 061
  8. BENADRYL [Concomitant]
     Route: 048
  9. PROTONIX [Concomitant]
     Indication: GASTROOESOPHAGEAL REFLUX DISEASE
     Route: 048
  10. ATENOLOL [Concomitant]
     Route: 048
  11. SUDAFED 12 HOUR [Concomitant]
     Dosage: 30 MG EVERY 6 HOURS AS NEEDED
     Route: 048
  12. TYLENOL (CAPLET) [Concomitant]
     Dosage: 650 MG EVERY 4-6 HOURS AS NEEDED
     Route: 048
  13. GLUCOTROL XL [Concomitant]
     Route: 048
  14. ATARAX [Concomitant]
     Dosage: 10 MG EVERY 12 HOURS AS NEEDED
     Route: 048
  15. ALLEGRA [Concomitant]
     Dosage: 60 MG EVERY 12 HOURS AS NEEDED
     Route: 048

REACTIONS (8)
  - ANAEMIA [None]
  - BLOOD POTASSIUM DECREASED [None]
  - CEREBROVASCULAR ACCIDENT [None]
  - CHOLANGITIS [None]
  - KLEBSIELLA INFECTION [None]
  - SEPSIS [None]
  - STENT OCCLUSION [None]
  - WHITE BLOOD CELL COUNT DECREASED [None]
